FAERS Safety Report 6472063-3 (Version None)
Quarter: 2009Q4

REPORT INFORMATION
  Report Type: 
  Country: None (occurrence: None)
  Receive Date: 20091203
  Receipt Date: 20080414
  Transmission Date: 20100525
  Serious: Yes (Hospitalization)
  Sender: FDA-Public Use
  Company Number: US-ELI_LILLY_AND_COMPANY-US200804003434

PATIENT
  Sex: Female

DRUGS (10)
  1. BYETTA [Suspect]
     Indication: TYPE 2 DIABETES MELLITUS
     Dosage: 5 UG, 2/D
     Route: 058
     Dates: start: 20070301, end: 20080201
  2. BYETTA [Suspect]
     Dosage: 10 UG, 2/D
     Route: 058
     Dates: start: 20080201
  3. POTASSIUM [Concomitant]
     Dosage: 20 MEQ, 2/D
  4. SYNTHROID [Concomitant]
     Indication: THYROID DISORDER
     Dosage: 0.1 MG, DAILY (1/D)
     Dates: start: 19880101
  5. HYDROCHLOROTHIAZIDE [Concomitant]
     Indication: BLOOD PRESSURE
     Dosage: 50 MG, DAILY (1/D)
     Dates: start: 19880101
  6. NAPROXEN [Concomitant]
     Indication: ARTHRITIS
     Dosage: 500 MG, 2/D
  7. ESTRADIOL [Concomitant]
     Indication: HORMONE REPLACEMENT THERAPY
     Dosage: 2 MG, DAILY (1/D)
  8. OMEPRAZOLE [Concomitant]
     Indication: GASTRIC DISORDER
     Dosage: 200 MG, DAILY (1/D)
     Dates: start: 20050101
  9. CARDIZEM [Concomitant]
     Indication: BLOOD PRESSURE
     Dosage: 360 MG, DAILY (1/D)
     Dates: start: 20030101
  10. SERTRALINE HCL [Concomitant]
     Indication: DEPRESSION
     Dosage: 50 MG, DAILY (1/D)
     Dates: start: 20030101

REACTIONS (6)
  - ASTHENIA [None]
  - BLADDER DISORDER [None]
  - BLOOD GLUCOSE DECREASED [None]
  - NAUSEA [None]
  - TREMOR [None]
  - WEIGHT DECREASED [None]
